FAERS Safety Report 17974169 (Version 1)
Quarter: 2020Q3

REPORT INFORMATION
  Report Type: Spontaneous
  Country: GR (occurrence: GR)
  Receive Date: 20200702
  Receipt Date: 20200702
  Transmission Date: 20201103
  Serious: Yes (Other)
  Sender: FDA-Public Use
  Company Number: GR-PFIZER INC-2020249548

PATIENT
  Sex: Female

DRUGS (5)
  1. FARMORUBICIN [Suspect]
     Active Substance: EPIRUBICIN HYDROCHLORIDE
     Indication: BLADDER CANCER
     Route: 043
  2. IMOTEC [Concomitant]
  3. BIOFENAC [Concomitant]
     Indication: INFLAMMATION
  4. NORGESIC [ORPHENADRINE CITRATE;PARACETAMOL] [Concomitant]
     Indication: INFLAMMATION
  5. T4 [Concomitant]
     Active Substance: LEVOTHYROXINE

REACTIONS (2)
  - Angioedema [Unknown]
  - Anaphylactic shock [Unknown]

NARRATIVE: CASE EVENT DATE: 202006
